FAERS Safety Report 17444042 (Version 1)
Quarter: 2020Q1

REPORT INFORMATION
  Report Type: Spontaneous
  Country: US (occurrence: US)
  Receive Date: 20200207
  Receipt Date: 20200207
  Transmission Date: 20200409
  Serious: Yes (Death, Hospitalization)
  Sender: FDA-Public Use
  Company Number: None

PATIENT
  Age: 73 Year
  Sex: Female
  Weight: 67 kg

DRUGS (1)
  1. ALIMTA [Suspect]
     Active Substance: PEMETREXED DISODIUM

REACTIONS (12)
  - Dehydration [None]
  - Back pain [None]
  - Abdominal pain [None]
  - Asthenia [None]
  - Dyspnoea [None]
  - Weight decreased [None]
  - Septic shock [None]
  - Intestinal ischaemia [None]
  - Nausea [None]
  - Diarrhoea [None]
  - Blood pressure increased [None]
  - Decreased appetite [None]

NARRATIVE: CASE EVENT DATE: 20200130
